FAERS Safety Report 24367431 (Version 3)
Quarter: 2024Q4

REPORT INFORMATION
  Report Type: Spontaneous
  Country: US (occurrence: US)
  Receive Date: 20240926
  Receipt Date: 20241030
  Transmission Date: 20250114
  Serious: Yes (Other)
  Sender: UCB
  Company Number: US-UCBSA-2024037083

PATIENT
  Sex: Female
  Weight: 97.06 kg

DRUGS (2)
  1. CIMZIA [Suspect]
     Active Substance: CERTOLIZUMAB PEGOL
     Indication: Psoriatic arthropathy
     Dosage: 400 MILLIGRAM, EV 2 WEEKS(QOW) (LOADING DOSE)
     Route: 058
  2. CIMZIA [Suspect]
     Active Substance: CERTOLIZUMAB PEGOL
     Dosage: 400 MILLIGRAM, EV 4 WEEKS (MAINTENANCE DOSE)
     Route: 058

REACTIONS (8)
  - Psoriatic arthropathy [Not Recovered/Not Resolved]
  - Hip surgery [Not Recovered/Not Resolved]
  - Crying [Unknown]
  - Nasal disorder [Unknown]
  - Oral disorder [Unknown]
  - Malaise [Not Recovered/Not Resolved]
  - Inappropriate schedule of product administration [Unknown]
  - Product dose omission issue [Unknown]
